FAERS Safety Report 8007427-X (Version None)
Quarter: 2011Q4

REPORT INFORMATION
  Report Type: 
  Country: None (occurrence: None)
  Receive Date: 20111227
  Receipt Date: 20111218
  Transmission Date: 20120403
  Serious: Yes (Other)
  Sender: FDA-Public Use
  Company Number: US-BAYER-2011-122163

PATIENT
  Age: 20 Year
  Sex: Female
  Weight: 68 kg

DRUGS (1)
  1. ASPIRIN [Suspect]
     Indication: TOOTHACHE
     Dosage: 4 DF, UNK
     Route: 048
     Dates: start: 20111218

REACTIONS (8)
  - DYSPNOEA [None]
  - HYPERSENSITIVITY [None]
  - ABDOMINAL PAIN UPPER [None]
  - EYE SWELLING [None]
  - SENSATION OF FOREIGN BODY [None]
  - SWELLING FACE [None]
  - PHARYNGEAL OEDEMA [None]
  - SWOLLEN TONGUE [None]
